FAERS Safety Report 6339056-8 (Version None)
Quarter: 2009Q3

REPORT INFORMATION
  Report Type: 
  Country: None (occurrence: None)
  Receive Date: 20090903
  Receipt Date: 20090826
  Transmission Date: 20100115
  Serious: Yes (Other)
  Sender: FDA-Public Use
  Company Number: DE-ROCHE-652631

PATIENT
  Sex: Female
  Weight: 53.9 kg

DRUGS (1)
  1. BONIVA [Suspect]
     Indication: OSTEOPOROSIS
     Dosage: FREQUENCY: 2
     Route: 042
     Dates: start: 20090224, end: 20090526

REACTIONS (1)
  - NEURODERMATITIS [None]
